FAERS Safety Report 16086624 (Version 1)
Quarter: 2019Q1

REPORT INFORMATION
  Report Type: Other
  Country: US (occurrence: US)
  Receive Date: 20190318
  Receipt Date: 20190318
  Transmission Date: 20190418
  Serious: Yes (Hospitalization)
  Sender: FDA-Public Use
  Company Number: US-STANDARD HOMEOPATHIC COMPANY-2064230

PATIENT
  Age: 82 Year
  Sex: Female

DRUGS (5)
  1. HYLANDS LEG CRAMPS [Suspect]
     Active Substance: HOMEOPATHICS
     Indication: PAIN
     Route: 048
     Dates: start: 20190225, end: 20190225
  2. HYLANDS LEG CRAMPS [Suspect]
     Active Substance: HOMEOPATHICS
     Indication: MUSCLE SPASMS
     Route: 048
     Dates: start: 20190225, end: 20190225
  3. BABY ASPIRIN [Suspect]
     Active Substance: ASPIRIN
  4. ALEVE [Suspect]
     Active Substance: NAPROXEN SODIUM
  5. HYLANDS LEG CRAMPS [Suspect]
     Active Substance: HOMEOPATHICS
     Indication: ARTHRALGIA
     Route: 048
     Dates: start: 20190225, end: 20190225

REACTIONS (1)
  - Gastrointestinal haemorrhage [Unknown]

NARRATIVE: CASE EVENT DATE: 20190225
